FAERS Safety Report 5260745-0 (Version None)
Quarter: 2007Q1

REPORT INFORMATION
  Report Type: 
  Country: None (occurrence: None)
  Receive Date: 20070309
  Receipt Date: 20070223
  Transmission Date: 20070707
  Serious: Yes (Other)
  Sender: FDA-Public Use
  Company Number: ES-ELI_LILLY_AND_COMPANY-ES200702005316

PATIENT
  Sex: Female

DRUGS (2)
  1. CYMBALTA [Suspect]
  2. TRICYCLIC ANTIDEPRESSANTS [Concomitant]

REACTIONS (1)
  - SHOCK [None]
